FAERS Safety Report 26208159 (Version 1)
Quarter: 2025Q4

REPORT INFORMATION
  Report Type: Spontaneous
  Country: CN (occurrence: CN)
  Receive Date: 20251229
  Receipt Date: 20251229
  Transmission Date: 20260118
  Serious: Yes (Hospitalization)
  Sender: BAYER HEALTHCARE PHARMACEUTICALS INC.
  Company Number: CN-BAYER-2025A168491

PATIENT
  Age: 83 Year
  Sex: Male
  Weight: 48 kg

DRUGS (2)
  1. ULTRAVIST [Suspect]
     Active Substance: IOPROMIDE
     Indication: Angiocardiogram
     Dosage: 40 ML, ONCE
     Route: 042
     Dates: start: 20251212, end: 20251212
  2. ULTRAVIST [Suspect]
     Active Substance: IOPROMIDE
     Indication: Acute coronary syndrome

REACTIONS (6)
  - Delirium [Recovered/Resolved]
  - Disorganised speech [Recovered/Resolved]
  - Patient uncooperative [Recovered/Resolved]
  - Cognitive disorder [Recovered/Resolved]
  - Agitation [Recovered/Resolved]
  - Dysphoria [Recovered/Resolved]

NARRATIVE: CASE EVENT DATE: 20251213
